FAERS Safety Report 6580425-9 (Version None)
Quarter: 2010Q1

REPORT INFORMATION
  Report Type: 
  Country: None (occurrence: None)
  Receive Date: 20100212
  Receipt Date: 20100206
  Transmission Date: 20100710
  Serious: Yes (Other)
  Sender: FDA-Public Use
  Company Number: PHHY2010GR06497

PATIENT
  Sex: Female

DRUGS (2)
  1. EXTAVIA [Suspect]
     Dosage: UNK
     Dates: start: 20090101
  2. CORTISONE [Concomitant]
     Dosage: UNK
     Dates: start: 20100101

REACTIONS (2)
  - HAEMATOCRIT DECREASED [None]
  - MENOMETRORRHAGIA [None]
